FAERS Safety Report 8887049 (Version 2)
Quarter: 2012Q4

REPORT INFORMATION
  Report Type: Report from Study
  Country: BR (occurrence: BR)
  Receive Date: 20121105
  Receipt Date: 20121203
  Transmission Date: 20130627
  Serious: Yes (Other)
  Sender: FDA-Public Use
  Company Number: BR-PFIZER INC-2011105742

PATIENT
  Age: 62 Year
  Sex: Female
  Weight: 105 kg

DRUGS (5)
  1. OLMETEC HCT [Suspect]
     Indication: HYPERTENSION
     Dosage: Olmesartan medoxomil 40 mg/hydrochlorothiazide 25 mg, one tablet, daily
     Route: 048
     Dates: start: 20101210
  2. OLMETEC HCT [Suspect]
     Indication: BLOOD PRESSURE
  3. NORVASC [Suspect]
     Dosage: UNK
     Route: 048
  4. ALLOPURINOL [Concomitant]
     Dosage: 100 mg (one unit), daily
     Dates: start: 201208
  5. LASIX [Concomitant]
     Dosage: UNK
     Dates: start: 201208

REACTIONS (3)
  - Diabetes mellitus [Unknown]
  - Drug ineffective [Unknown]
  - Swelling [Unknown]
